FAERS Safety Report 6687550-2 (Version None)
Quarter: 2010Q2

REPORT INFORMATION
  Report Type: 
  Country: None (occurrence: None)
  Receive Date: 20100419
  Receipt Date: 20100412
  Transmission Date: 20101027
  Serious: Yes (Hospitalization)
  Sender: FDA-Public Use
  Company Number: US-MERCK-1004USA01671

PATIENT
  Age: 58 Year
  Sex: Female

DRUGS (7)
  1. FOSAMAX [Suspect]
     Indication: OSTEOPOROSIS
     Route: 048
     Dates: start: 19980101
  2. FOSAMAX [Suspect]
     Route: 048
     Dates: end: 20070101
  3. FOSAMAX [Suspect]
     Indication: OSTEOPENIA
     Route: 048
     Dates: start: 19980101
  4. FOSAMAX [Suspect]
     Route: 048
     Dates: end: 20070101
  5. TIMOLOL [Concomitant]
     Route: 048
  6. ESTROGENS (UNSPECIFIED) [Concomitant]
     Route: 065
  7. SIMVASTATIN [Concomitant]
     Route: 048

REACTIONS (6)
  - ASTHENIA [None]
  - BALANCE DISORDER [None]
  - FALL [None]
  - GAIT DISTURBANCE [None]
  - MOBILITY DECREASED [None]
  - PAIN [None]
